FAERS Safety Report 23551346 (Version 3)
Quarter: 2024Q2

REPORT INFORMATION
  Report Type: Report from Study
  Country: US (occurrence: US)
  Receive Date: 20240222
  Receipt Date: 20240511
  Transmission Date: 20240716
  Serious: No
  Sender: FDA-Public Use
  Company Number: US-AstraZeneca-CH-00569631A

PATIENT
  Age: 36 Year
  Sex: Female

DRUGS (1)
  1. STRENSIQ [Suspect]
     Active Substance: ASFOTASE ALFA
     Indication: Product used for unknown indication
     Dosage: UNK
     Route: 065

REACTIONS (6)
  - Skin striae [Unknown]
  - Injection site pain [Unknown]
  - Injection site erythema [Unknown]
  - Sensitive skin [Unknown]
  - Injection site swelling [Unknown]
  - Migraine [Unknown]

NARRATIVE: CASE EVENT DATE: 20240216
